FAERS Safety Report 5450304-9 (Version None)
Quarter: 2007Q3

REPORT INFORMATION
  Report Type: 
  Country: None (occurrence: None)
  Receive Date: 20070912
  Receipt Date: 20070907
  Transmission Date: 20080115
  Serious: Yes (Other)
  Sender: FDA-Public Use
  Company Number: US-ASTRAZENECA-2007UW21231

PATIENT
  Age: 892 Month
  Sex: Female

DRUGS (4)
  1. ARIMIDEX [Suspect]
     Indication: BREAST CANCER STAGE II
     Route: 048
     Dates: start: 20061101, end: 20070301
  2. DIOVAN [Concomitant]
  3. NEXIUM [Concomitant]
     Route: 048
  4. ATENOLOL [Concomitant]
     Route: 048

REACTIONS (3)
  - ABASIA [None]
  - DYSSTASIA [None]
  - MUSCULAR WEAKNESS [None]
